FAERS Safety Report 7612136-2 (Version None)
Quarter: 2011Q3

REPORT INFORMATION
  Report Type: 
  Country: None (occurrence: None)
  Receive Date: 20110715
  Receipt Date: 20110617
  Transmission Date: 20111222
  Serious: Yes (Hospitalization)
  Sender: FDA-Public Use
  Company Number: GB-AMGEN-GBRSP2011031208

PATIENT
  Sex: Male
  Weight: 1.88 kg

DRUGS (1)
  1. ARANESP [Suspect]
     Dosage: 40 A?G, Q2WK
     Route: 064
     Dates: start: 20110203

REACTIONS (1)
  - PREMATURE BABY [None]
